FAERS Safety Report 8884473 (Version 4)
Quarter: 2014Q1

REPORT INFORMATION
  Report Type: Spontaneous
  Country: US (occurrence: US)
  Receive Date: 20121102
  Receipt Date: 20140313
  Transmission Date: 20141002
  Serious: Yes (Hospitalization, Disabling, Other)
  Sender: FDA-Public Use
  Company Number: US-009507513-1210USA010385

PATIENT
  Sex: Female
  Weight: 77.98 kg

DRUGS (5)
  1. FOSAMAX [Suspect]
     Indication: OSTEOPENIA
     Dosage: 70 MG, QW
     Route: 048
     Dates: start: 19990928, end: 20100401
  2. FOSAMAX [Suspect]
     Indication: OSTEOPOROSIS
  3. ALENDRONATE SODIUM [Suspect]
     Indication: OSTEOPENIA
     Dosage: 70 MG, QW
     Route: 048
     Dates: start: 20091218, end: 20100115
  4. ALENDRONATE SODIUM [Suspect]
     Indication: OSTEOPOROSIS
  5. VITAMINS (UNSPECIFIED) [Concomitant]
     Dosage: UNK
     Dates: start: 19990928

REACTIONS (42)
  - Femoral neck fracture [Not Recovered/Not Resolved]
  - Hip arthroplasty [Unknown]
  - Femur fracture [Not Recovered/Not Resolved]
  - Bunion operation [Unknown]
  - Bunion operation [Unknown]
  - Uterine dilation and curettage [Unknown]
  - Postmenopausal haemorrhage [Unknown]
  - Uterine dilation and curettage [Unknown]
  - Postmenopausal haemorrhage [Unknown]
  - Skin cancer [Unknown]
  - Low turnover osteopathy [Not Recovered/Not Resolved]
  - Osteoporosis [Not Recovered/Not Resolved]
  - Stress fracture [Not Recovered/Not Resolved]
  - Hypersensitivity [Recovered/Resolved]
  - Ankle fracture [Unknown]
  - Motion sickness [Recovered/Resolved]
  - Urinary tract infection [Not Recovered/Not Resolved]
  - Infection [Not Recovered/Not Resolved]
  - Bacterial infection [Recovered/Resolved]
  - Blood potassium decreased [Unknown]
  - Hypertension [Not Recovered/Not Resolved]
  - Fungal infection [Unknown]
  - Fluid retention [Unknown]
  - Skin infection [Unknown]
  - Hypercholesterolaemia [Not Recovered/Not Resolved]
  - Depression [Unknown]
  - Drug administration error [Unknown]
  - Uterine leiomyoma [Unknown]
  - Bladder spasm [Unknown]
  - Hyponatraemia [Recovered/Resolved]
  - Somnolence [Unknown]
  - Leukocytosis [Unknown]
  - Nephrolithiasis [Unknown]
  - Anxiety [Unknown]
  - Vitamin D deficiency [Unknown]
  - Pyrexia [Recovered/Resolved]
  - Drug hypersensitivity [Unknown]
  - Drug hypersensitivity [Unknown]
  - Drug hypersensitivity [Unknown]
  - Gastrooesophageal reflux disease [Not Recovered/Not Resolved]
  - Hypocalcaemia [Unknown]
  - Arthralgia [Unknown]
